FAERS Safety Report 16430108 (Version 2)
Quarter: 2019Q2

REPORT INFORMATION
  Report Type: Spontaneous
  Country: NL (occurrence: NL)
  Receive Date: 20190614
  Receipt Date: 20190618
  Transmission Date: 20190711
  Serious: Yes (Hospitalization)
  Sender: FDA-Public Use
  Company Number: NL-TEVA-2019-NL-1062009

PATIENT
  Sex: Male
  Weight: 82 kg

DRUGS (6)
  1. ATORVASTATINE TABLET, 80 MG (MILLIGRAM) [Suspect]
     Active Substance: ATORVASTATIN
     Indication: MYOCARDIAL INFARCTION
     Dosage: 1 X PER DAY
     Dates: start: 20180715, end: 20190416
  2. PERINDOPRIL [Concomitant]
     Active Substance: PERINDOPRIL
     Route: 065
  3. CLOPIDOGREL [Concomitant]
     Active Substance: CLOPIDOGREL BISULFATE
     Route: 065
  4. METOPROLOL. [Concomitant]
     Active Substance: METOPROLOL
     Route: 065
  5. IJZERPILLEN [Concomitant]
  6. FENPROCOUMON [Concomitant]
     Active Substance: PHENPROCOUMON
     Route: 065

REACTIONS (8)
  - Myalgia [Recovered/Resolved]
  - Insomnia [Recovered/Resolved]
  - Gynaecomastia [Not Recovered/Not Resolved]
  - Pruritus [Recovered/Resolved]
  - Petechiae [Recovered/Resolved]
  - Arthralgia [Recovered/Resolved]
  - Haemorrhage [Unknown]
  - Liver iron concentration increased [Unknown]
